FAERS Safety Report 5374794-5 (Version None)
Quarter: 2007Q2

REPORT INFORMATION
  Report Type: 
  Country: None (occurrence: None)
  Receive Date: 20070625
  Receipt Date: 20070416
  Transmission Date: 20071010
  Serious: Yes (Death)
  Sender: FDA-Public Use
  Company Number: 07P-163-0357828-00

PATIENT
  Sex: Female
  Weight: 52.6173 kg

DRUGS (1)
  1. HUMIRA [Suspect]
     Indication: RHEUMATOID ARTHRITIS
     Dosage: 40 MG, 1 IN 2 WK; SUBCUTAENOUS
     Route: 058
     Dates: start: 20030401, end: 20051202

REACTIONS (1)
  - DEATH [None]
